FAERS Safety Report 7820196-9 (Version None)
Quarter: 2011Q4

REPORT INFORMATION
  Report Type: 
  Country: None (occurrence: None)
  Receive Date: 20111018
  Receipt Date: 20111014
  Transmission Date: 20120403
  Serious: Yes (Other)
  Sender: FDA-Public Use
  Company Number: IT-GENZYME-CAMP-1001017

PATIENT
  Sex: Female
  Weight: 54 kg

DRUGS (7)
  1. ALEMTUZUMAB [Suspect]
     Indication: MULTIPLE SCLEROSIS
     Dosage: 12 MG, QDX5
     Route: 042
     Dates: start: 20090330, end: 20090403
  2. ALEMTUZUMAB [Suspect]
     Dosage: 12 MG, QDX3
     Route: 042
     Dates: start: 20100323, end: 20100325
  3. LEVOTHYROXINE SODIUM [Concomitant]
     Indication: HYPOTHYROIDISM
     Dosage: 25 MCG, QD
     Route: 048
     Dates: start: 20110210, end: 20110212
  4. LEVOTHYROXINE SODIUM [Concomitant]
     Dosage: 50 MCG, QD
     Route: 048
     Dates: start: 20110213, end: 20110227
  5. METHYLPREDNISOLONE [Concomitant]
     Dosage: 1 G, QDX3
     Route: 042
     Dates: start: 20100323, end: 20100325
  6. LEVOTHYROXINE SODIUM [Concomitant]
     Dosage: 75 MCG, QD
     Route: 048
     Dates: start: 20110401
  7. METHYLPREDNISOLONE [Concomitant]
     Indication: MULTIPLE SCLEROSIS
     Dosage: 1.0 G, QDX3
     Route: 042
     Dates: start: 20090330, end: 20090401

REACTIONS (2)
  - HYPERTHYROIDISM [None]
  - HYPOTHYROIDISM [None]
